FAERS Safety Report 7595370-X (Version None)
Quarter: 2011Q2

REPORT INFORMATION
  Report Type: 
  Country: None (occurrence: None)
  Receive Date: 20110620
  Receipt Date: 20110510
  Transmission Date: 20111010
  Serious: Yes (Death, Hospitalization)
  Sender: FDA-Public Use
  Company Number: UTC-007021

PATIENT
  Age: 62 Year
  Sex: Female

DRUGS (2)
  1. TYVASO [Suspect]
     Indication: PULMONARY HYPERTENSION
     Dosage: 216 MCG (54 MCG, 4 IN 1 D), IINHALATION
     Route: 055
     Dates: start: 20100601
  2. DIURETICS [Concomitant]

REACTIONS (2)
  - MYOCARDIAL INFARCTION [None]
  - CHYLOTHORAX [None]
